FAERS Safety Report 8177235-8 (Version None)
Quarter: 2012Q1

REPORT INFORMATION
  Report Type: 
  Country: None (occurrence: None)
  Receive Date: 20120301
  Receipt Date: 20120224
  Transmission Date: 20120608
  Serious: Yes (Death, Life-Threatening, Hospitalization, Other)
  Sender: FDA-Public Use
  Company Number: JP-ELI_LILLY_AND_COMPANY-JP201107002064

PATIENT
  Sex: Female

DRUGS (1)
  1. GEMZAR [Suspect]
     Indication: BILE DUCT CANCER STAGE II
     Dosage: 800 MG, OTHER
     Route: 042
     Dates: start: 20100818, end: 20100915

REACTIONS (8)
  - PNEUMONIA ASPIRATION [None]
  - ENTEROCOLITIS [None]
  - PNEUMOMEDIASTINUM [None]
  - DIARRHOEA [None]
  - DECREASED APPETITE [None]
  - DEHYDRATION [None]
  - INTERSTITIAL LUNG DISEASE [None]
  - PYREXIA [None]
